FAERS Safety Report 21514481 (Version 1)
Quarter: 2022Q4

REPORT INFORMATION
  Report Type: Spontaneous
  Country: US (occurrence: US)
  Receive Date: 20221027
  Receipt Date: 20221027
  Transmission Date: 20230113
  Serious: No
  Sender: FDA-Public Use
  Company Number: US-BRISTOL-MYERS SQUIBB COMPANY-2022-128088

PATIENT
  Age: 77 Year
  Sex: Male

DRUGS (1)
  1. SPRYCEL [Suspect]
     Active Substance: DASATINIB
     Indication: Leukaemia in remission
     Route: 048

REACTIONS (3)
  - Contusion [Recovered/Resolved]
  - Raynaud^s phenomenon [Unknown]
  - Arthritis [Unknown]

NARRATIVE: CASE EVENT DATE: 20221024
